FAERS Safety Report 21205971 (Version 9)
Quarter: 2024Q1

REPORT INFORMATION
  Report Type: Report from Study
  Country: CA (occurrence: CA)
  Receive Date: 20220812
  Receipt Date: 20240320
  Transmission Date: 20240410
  Serious: Yes (Other)
  Sender: FDA-Public Use
  Company Number: CA-NOVARTISPH-NVSC2022CA097505

PATIENT
  Age: 69 Year
  Sex: Female

DRUGS (11)
  1. COSENTYX [Suspect]
     Active Substance: SECUKINUMAB
     Indication: Psoriasis
     Dosage: 300 MG, QW, (0,1,2,3)
     Route: 058
     Dates: start: 20220217
  2. COSENTYX [Suspect]
     Active Substance: SECUKINUMAB
     Indication: Psoriatic arthropathy
     Dosage: UNK
     Route: 065
     Dates: start: 20220530
  3. COSENTYX [Suspect]
     Active Substance: SECUKINUMAB
     Dosage: 300 MG, QMO
     Route: 058
     Dates: end: 20230109
  4. COSENTYX [Suspect]
     Active Substance: SECUKINUMAB
     Dosage: 300 MG, QMO
     Route: 058
     Dates: start: 20230806
  5. COSENTYX [Suspect]
     Active Substance: SECUKINUMAB
     Dosage: 300 MG, QMO (SECOND LOADING DOSE)
     Route: 058
     Dates: start: 20230813
  6. PREDNISONE [Suspect]
     Active Substance: PREDNISONE
     Indication: Ear infection
     Dosage: UNK
     Route: 065
  7. NITROFURANTOIN [Suspect]
     Active Substance: NITROFURANTOIN
     Indication: Cystitis
     Dosage: 2 DOSAGE FORM, QD (2 TABS DAILY X 5 DAYS)
     Route: 065
  8. RATIO-CLOBETASOL [Concomitant]
     Indication: Product used for unknown indication
     Dosage: UNK
     Route: 065
  9. MOMETASONE [Concomitant]
     Active Substance: MOMETASONE
     Indication: Product used for unknown indication
     Dosage: UNK
     Route: 065
  10. HUMIRA [Concomitant]
     Active Substance: ADALIMUMAB
     Indication: Product used for unknown indication
     Dosage: UNK
     Route: 058
     Dates: start: 2009
  11. CYCLOSPORINE [Concomitant]
     Active Substance: CYCLOSPORINE
     Indication: Product used for unknown indication
     Dosage: UNK
     Route: 065

REACTIONS (19)
  - Clostridium difficile infection [Unknown]
  - Furuncle [Unknown]
  - Pain in extremity [Recovering/Resolving]
  - Ear infection [Not Recovered/Not Resolved]
  - Skin ulcer [Unknown]
  - Otitis media [Unknown]
  - Bacterial infection [Unknown]
  - Cystitis [Unknown]
  - Tympanic membrane perforation [Unknown]
  - Infection [Recovered/Resolved]
  - Feeling abnormal [Unknown]
  - Sinusitis [Not Recovered/Not Resolved]
  - Nasal congestion [Unknown]
  - Diarrhoea [Unknown]
  - Urinary tract pain [Unknown]
  - Cystitis noninfective [Unknown]
  - Micturition urgency [Unknown]
  - Inappropriate schedule of product administration [Unknown]
  - Psoriasis [Unknown]

NARRATIVE: CASE EVENT DATE: 20220701
